FAERS Safety Report 6870500-3 (Version None)
Quarter: 2010Q3

REPORT INFORMATION
  Report Type: 
  Country: None (occurrence: None)
  Receive Date: 20100723
  Receipt Date: 20100715
  Transmission Date: 20110219
  Serious: No
  Sender: FDA-Public Use
  Company Number: US-BIOGENIDEC-2010BI023861

PATIENT
  Age: 44 Year
  Sex: Male

DRUGS (3)
  1. AVONEX [Suspect]
     Indication: MULTIPLE SCLEROSIS
     Route: 030
     Dates: start: 20090301
  2. TRAMADOL [Concomitant]
     Indication: BACK PAIN
     Route: 048
  3. EXCEDRIN (MIGRAINE) [Concomitant]
     Indication: BACK PAIN
     Route: 048

REACTIONS (4)
  - INJECTION SITE PAIN [None]
  - MEMORY IMPAIRMENT [None]
  - MULTIPLE SCLEROSIS [None]
  - VISUAL IMPAIRMENT [None]
